FAERS Safety Report 8815071 (Version 1)
Quarter: 2012Q4

REPORT INFORMATION
  Report Type: Report from Study
  Country: US (occurrence: US)
  Receive Date: 20120928
  Receipt Date: 20120928
  Transmission Date: 20130627
  Serious: Yes (Hospitalization)
  Sender: FDA-Public Use
  Company Number: US-ROCHE-1129131

PATIENT
  Age: 78 Year
  Sex: Female
  Weight: 73.48 kg

DRUGS (12)
  1. AVASTIN [Suspect]
     Indication: OVARIAN EPITHELIAL CANCER
     Dosage: day 1 and day 15 of 4 week cycle. Last dose proir to SAE on 28/Aug/
     Route: 042
     Dates: start: 20120814
  2. IBUPROFEN [Suspect]
     Indication: OVARIAN EPITHELIAL CANCER
  3. EVEROLIMUS [Suspect]
     Indication: OVARIAN EPITHELIAL CANCER
     Dosage: last dose administered on 10/Sep/2012
     Route: 065
     Dates: start: 20120814
  4. BUSPIRONE [Concomitant]
  5. MAGNESIUM OXIDE [Concomitant]
  6. MULTIVITAMIN [Concomitant]
  7. NEXIUM [Concomitant]
  8. NIACIN [Concomitant]
  9. REGLAN [Concomitant]
  10. TARKA [Concomitant]
  11. VITAMIN E [Concomitant]
  12. ZOFRAN [Concomitant]

REACTIONS (2)
  - Dehydration [Recovered/Resolved]
  - Renal failure acute [Recovered/Resolved]
